FAERS Safety Report 14623427 (Version 1)
Quarter: 2018Q1

REPORT INFORMATION
  Report Type: Spontaneous
  Country: GB (occurrence: GB)
  Receive Date: 20180312
  Receipt Date: 20180312
  Transmission Date: 20180509
  Serious: Yes (Other)
  Sender: FDA-Public Use
  Company Number: GB-ALVOGEN-2018-ALVOGEN-095427

PATIENT
  Age: 74 Year
  Sex: Female
  Weight: 67.1 kg

DRUGS (1)
  1. ATENOLOL. [Suspect]
     Active Substance: ATENOLOL
     Indication: CARDIAC DISORDER
     Dosage: 25.0MG UNKNOWN
     Route: 048

REACTIONS (2)
  - Reaction to colouring [Unknown]
  - Anxiety [Unknown]
